FAERS Safety Report 19174003 (Version 1)
Quarter: 2021Q2

REPORT INFORMATION
  Report Type: Spontaneous
  Country: US (occurrence: US)
  Receive Date: 20210423
  Receipt Date: 20210423
  Transmission Date: 20210717
  Serious: No
  Sender: FDA-Public Use
  Company Number: US-PFIZER INC-2021345761

PATIENT
  Age: 75 Year
  Sex: Female
  Weight: 71.67 kg

DRUGS (1)
  1. IBRANCE [Suspect]
     Active Substance: PALBOCICLIB
     Indication: BREAST CANCER METASTATIC
     Dosage: 125 MG, 1X/DAY (FOR 21 DAYS AND OFF 7 DAYS)
     Route: 048
     Dates: start: 20200429

REACTIONS (3)
  - Fatigue [Unknown]
  - Illness [Unknown]
  - Body height decreased [Unknown]
